FAERS Safety Report 7880879-1 (Version None)
Quarter: 2011Q4

REPORT INFORMATION
  Report Type: 
  Country: None (occurrence: None)
  Receive Date: 20111101
  Receipt Date: 20111021
  Transmission Date: 20120403
  Serious: Yes (Hospitalization)
  Sender: FDA-Public Use
  Company Number: DE-BAXTER-2011BH033788

PATIENT
  Age: 69 Year
  Sex: Female
  Weight: 51 kg

DRUGS (17)
  1. DOXORUBICIN HCL [Suspect]
     Route: 042
     Dates: start: 20080615, end: 20080812
  2. STUDY DRUG [Suspect]
     Indication: NON-HODGKIN'S LYMPHOMA
     Route: 042
     Dates: start: 20080610, end: 20080812
  3. HYDROCHLOROTHIAZIDE [Concomitant]
     Indication: PRODUCT USED FOR UNKNOWN INDICATION
     Route: 065
     Dates: start: 20080613
  4. DOXORUBICIN HCL [Suspect]
     Indication: NON-HODGKIN'S LYMPHOMA
     Route: 042
     Dates: start: 20080101, end: 20080612
  5. VINCRISTINE SULFATE [Suspect]
     Indication: NON-HODGKIN'S LYMPHOMA
     Route: 042
     Dates: start: 20080101, end: 20080612
  6. RITUXIMAB [Suspect]
     Indication: NON-HODGKIN'S LYMPHOMA
     Route: 042
     Dates: start: 20080611, end: 20080812
  7. TEMISARTAN [Concomitant]
     Indication: PRODUCT USED FOR UNKNOWN INDICATION
     Route: 065
     Dates: start: 20080613
  8. CYCLOPHOSPHAMIDE [Suspect]
     Indication: NON-HODGKIN'S LYMPHOMA
     Route: 042
     Dates: start: 20080101, end: 20080612
  9. METHIMAZOLE [Concomitant]
     Indication: PRODUCT USED FOR UNKNOWN INDICATION
     Route: 065
     Dates: start: 20080623
  10. CYCLOPHOSPHAMIDE [Suspect]
     Route: 042
     Dates: start: 20080615, end: 20080812
  11. PREDNISONE [Suspect]
     Indication: NON-HODGKIN'S LYMPHOMA
     Route: 048
     Dates: start: 20080101, end: 20080612
  12. AMBROXOL [Concomitant]
     Indication: PRODUCT USED FOR UNKNOWN INDICATION
     Route: 065
     Dates: start: 20080605, end: 20080621
  13. SIMVASTATIN [Concomitant]
     Indication: PRODUCT USED FOR UNKNOWN INDICATION
     Route: 065
     Dates: end: 20080623
  14. KALINOR-BRAUSETABLETTEN [Concomitant]
     Indication: PRODUCT USED FOR UNKNOWN INDICATION
     Route: 065
     Dates: start: 20080607
  15. VINCRISTINE SULFATE [Suspect]
     Route: 042
     Dates: start: 20080615, end: 20080812
  16. PREDNISONE [Suspect]
     Route: 048
     Dates: start: 20080615, end: 20080812
  17. ALBUTEROL SULFATE AUTOHALER [Concomitant]
     Indication: PRODUCT USED FOR UNKNOWN INDICATION
     Route: 065

REACTIONS (6)
  - INFECTION [None]
  - PYREXIA [None]
  - LEUKOPENIA [None]
  - HYPOKALAEMIA [None]
  - PULMONARY EMBOLISM [None]
  - NEUTROPENIA [None]
